FAERS Safety Report 7227027-9 (Version None)
Quarter: 2011Q1

REPORT INFORMATION
  Report Type: 
  Country: None (occurrence: None)
  Receive Date: 20110114
  Receipt Date: 20110106
  Transmission Date: 20110831
  Serious: Yes (Other)
  Sender: FDA-Public Use
  Company Number: US-SANOFI-AVENTIS-2011SA001024

PATIENT
  Age: 82 Year
  Sex: Male

DRUGS (4)
  1. LANTUS [Suspect]
     Indication: TYPE 2 DIABETES MELLITUS
     Dosage: DOSE:30 UNIT(S)
     Route: 058
     Dates: start: 20010101, end: 20101201
  2. METFORMIN HCL [Concomitant]
  3. GLYBURIDE [Concomitant]
  4. LANTUS [Suspect]
     Dosage: 15 UNITS IN AM AND 15 UNITS IN PM
     Route: 058
     Dates: start: 20101201

REACTIONS (8)
  - HYPOGLYCAEMIA [None]
  - ASTHENIA [None]
  - HAEMORRHAGE [None]
  - GLYCOSYLATED HAEMOGLOBIN INCREASED [None]
  - DIZZINESS [None]
  - BLOOD GLUCOSE INCREASED [None]
  - CARDIAC PACEMAKER INSERTION [None]
  - DIARRHOEA [None]
